FAERS Safety Report 25291316 (Version 2)
Quarter: 2025Q3

REPORT INFORMATION
  Report Type: Spontaneous
  Country: US (occurrence: US)
  Receive Date: 20250510
  Receipt Date: 20250919
  Transmission Date: 20251021
  Serious: No
  Sender: SANOFI AVENTIS
  Company Number: US-SA-2025SA120406

PATIENT
  Age: 43 Year
  Sex: Male

DRUGS (35)
  1. REZUROCK [Suspect]
     Active Substance: BELUMOSUDIL
     Indication: Chronic graft versus host disease
     Dosage: 200MG, BID
     Route: 048
  2. ACYCLOVIR [Concomitant]
     Active Substance: ACYCLOVIR
  3. ACYCLOVIR [Concomitant]
     Active Substance: ACYCLOVIR
  4. ALLOPURINOL [Concomitant]
     Active Substance: ALLOPURINOL
  5. ALLOPURINOL [Concomitant]
     Active Substance: ALLOPURINOL
  6. PERIDEX [Concomitant]
     Active Substance: CHLORHEXIDINE GLUCONATE
  7. CLOBETASOL PROPIONATE [Concomitant]
     Active Substance: CLOBETASOL PROPIONATE
  8. DESONIDE [Concomitant]
     Active Substance: DESONIDE
  9. JAKAFI [Concomitant]
     Active Substance: RUXOLITINIB
     Route: 048
  10. PROTONIX [Concomitant]
     Active Substance: PANTOPRAZOLE SODIUM
     Route: 048
  11. MAGNESIUM [Concomitant]
     Active Substance: MAGNESIUM
     Route: 048
  12. FLUOCINONIDE [Concomitant]
     Active Substance: FLUOCINONIDE
  13. KLONOPIN [Concomitant]
     Active Substance: CLONAZEPAM
  14. LACOSAMIDE [Concomitant]
     Active Substance: LACOSAMIDE
     Route: 048
  15. METOPROLOL [Concomitant]
     Active Substance: METOPROLOL
  16. NARCAN [Concomitant]
     Active Substance: NALOXONE HYDROCHLORIDE
  17. DICYCLOMINE [Concomitant]
     Active Substance: DICYCLOMINE HYDROCHLORIDE
  18. BUDESONIDE [Concomitant]
     Active Substance: BUDESONIDE
  19. BUDESONIDE [Concomitant]
     Active Substance: BUDESONIDE
  20. BACTRIM [Concomitant]
     Active Substance: SULFAMETHOXAZOLE\TRIMETHOPRIM
  21. VITAMIN D2 [Concomitant]
     Active Substance: ERGOCALCIFEROL
  22. TYLENOL [Concomitant]
     Active Substance: ACETAMINOPHEN
  23. TOBRADEX [Concomitant]
     Active Substance: DEXAMETHASONE\TOBRAMYCIN
  24. TACROLIMUS [Concomitant]
     Active Substance: TACROLIMUS
     Route: 048
  25. SIROLIMUS [Concomitant]
     Active Substance: SIROLIMUS
     Route: 048
  26. RESTASIS [Concomitant]
     Active Substance: CYCLOSPORINE
  27. PROCHLORPERAZINE [Concomitant]
     Active Substance: PROCHLORPERAZINE
  28. REFRESH CLASSIC [Concomitant]
     Active Substance: POLYVINYL ALCOHOL\POVIDONE
  29. METOPROLOL TARTRATE [Concomitant]
     Active Substance: METOPROLOL TARTRATE
     Route: 048
  30. BACTRIM DS [Concomitant]
     Active Substance: SULFAMETHOXAZOLE\TRIMETHOPRIM
     Route: 048
  31. PROCHLORPERAZINE MALEATE [Concomitant]
     Active Substance: PROCHLORPERAZINE MALEATE
  32. Biotene dry mouth [Concomitant]
  33. POSACONAZOLE [Concomitant]
     Active Substance: POSACONAZOLE
     Route: 048
  34. DICYCLOMINE HYDROCHLORIDE [Concomitant]
     Active Substance: DICYCLOMINE HYDROCHLORIDE
  35. TYLENOL EXTRA STRENGTH [Concomitant]
     Active Substance: ACETAMINOPHEN

REACTIONS (4)
  - Dry eye [Not Recovered/Not Resolved]
  - Skin discolouration [Not Recovered/Not Resolved]
  - Weight decreased [Not Recovered/Not Resolved]
  - Nasopharyngitis [Recovering/Resolving]
